FAERS Safety Report 6027173-1 (Version None)
Quarter: 2009Q1

REPORT INFORMATION
  Report Type: 
  Country: None (occurrence: None)
  Receive Date: 20090105
  Receipt Date: 20081223
  Transmission Date: 20090719
  Serious: Yes (Other)
  Sender: FDA-Public Use
  Company Number: GB-PFIZER INC-2009150140

PATIENT

DRUGS (1)
  1. HEMABATE [Suspect]
     Indication: POSTPARTUM HAEMORRHAGE
     Dosage: '250 MG', TWICE PER HOUR
     Route: 030
     Dates: start: 20081119, end: 20081119

REACTIONS (2)
  - BRONCHOSPASM [None]
  - PULMONARY OEDEMA [None]
